FAERS Safety Report 9538324 (Version 2)
Quarter: 2013Q3

REPORT INFORMATION
  Report Type: Spontaneous
  Country: US (occurrence: US)
  Receive Date: 20130920
  Receipt Date: 20130926
  Transmission Date: 20140515
  Serious: No
  Sender: FDA-Public Use
  Company Number: US-BAYER-2013-113725

PATIENT
  Age: 54 Year
  Sex: Female

DRUGS (2)
  1. BETASERON [Suspect]
     Indication: MULTIPLE SCLEROSIS
     Dosage: UNK
     Dates: start: 20130730, end: 2013
  2. BETASERON [Suspect]
     Indication: MULTIPLE SCLEROSIS
     Dosage: 0.25 MG, QOD
     Route: 058
     Dates: start: 2013, end: 2013

REACTIONS (4)
  - Injection site rash [Recovering/Resolving]
  - Fatigue [None]
  - Injection site pain [Recovering/Resolving]
  - Injection site irritation [Recovering/Resolving]
